FAERS Safety Report 10042187 (Version 2)
Quarter: 2014Q2

REPORT INFORMATION
  Report Type: Spontaneous
  Country: US (occurrence: US)
  Receive Date: 20140327
  Receipt Date: 20140506
  Transmission Date: 20141212
  Serious: Yes (Hospitalization)
  Sender: FDA-Public Use
  Company Number: US-GLAXOSMITHKLINE-A1066320A

PATIENT
  Age: 18 Year
  Sex: Male
  Weight: 63.6 kg

DRUGS (3)
  1. LAMICTAL [Suspect]
     Indication: EPILEPSY
     Dosage: 200MG TWICE PER DAY
     Route: 048
     Dates: start: 201309
  2. LAMOTRIGINE [Suspect]
     Indication: EPILEPSY
     Dosage: 200MG TWICE PER DAY
     Route: 048
     Dates: start: 201311
  3. NO CONCURRENT MEDICATION [Concomitant]

REACTIONS (6)
  - Convulsion [Unknown]
  - Rash [Unknown]
  - Mood swings [Unknown]
  - Emotional disorder [Unknown]
  - Vomiting [Unknown]
  - Dyspepsia [Unknown]
